FAERS Safety Report 5499564-9 (Version None)
Quarter: 2007Q4

REPORT INFORMATION
  Report Type: 
  Country: None (occurrence: None)
  Receive Date: 20071026
  Receipt Date: 20071016
  Transmission Date: 20080405
  Serious: Yes (Other)
  Sender: FDA-Public Use
  Company Number: US-ELI_LILLY_AND_COMPANY-US200709005949

PATIENT
  Age: 33 Year
  Sex: Female

DRUGS (29)
  1. HUMATROPE [Suspect]
     Indication: HYPOPITUITARISM
     Dosage: 0.3 MG, UNKNOWN
  2. SYNTHROID [Concomitant]
     Indication: HYPOTHYROIDISM
     Dosage: 150 UG, DAILY (1/D)
  3. CYTOMEL [Concomitant]
     Indication: HYPOTHYROIDISM
     Dosage: 10 UG, DAILY (1/D)
  4. TESTOSTERONE [Concomitant]
     Dosage: 0.25 UNK, DAILY (1/D)
  5. VIVELLE                            /00045401/ [Concomitant]
     Indication: OESTROGEN REPLACEMENT THERAPY
     Dosage: UNK, 2/W
     Route: 062
  6. NORETHINDRONE [Concomitant]
     Dosage: 10 MG, DAILY (1/D)
  7. PREDNISONE [Concomitant]
     Dosage: 7 MG, DAILY (1/D)
  8. COPAXONE [Concomitant]
     Indication: MULTIPLE SCLEROSIS
     Dosage: 20 MG, DAILY (1/D)
     Route: 058
  9. ADDERALL 10 [Concomitant]
     Indication: HYPERSOMNIA
     Dosage: 20 MG, 2/D
     Route: 048
  10. TOPAMAX [Concomitant]
     Indication: MIGRAINE PROPHYLAXIS
     Dosage: 50 MG, 2/D
     Route: 048
  11. CYMBALTA [Concomitant]
     Dosage: 30 MG, UNK
     Dates: end: 20070917
  12. ZYRTEC [Concomitant]
     Indication: HYPERSENSITIVITY
     Dosage: 10 MG, DAILY (1/D)
     Route: 048
  13. PROVENTIL                               /USA/ [Concomitant]
     Dosage: UNK, AS NEEDED
     Route: 055
     Dates: end: 20070917
  14. CEPHALEXIN [Concomitant]
     Dosage: 500 MG, DAILY (1/D)
     Dates: end: 20051118
  15. CEPHALEXIN [Concomitant]
     Dosage: 500 MG, DAILY (1/D)
     Dates: start: 20051118, end: 20051118
  16. FROVA [Concomitant]
     Indication: MIGRAINE
     Dosage: 50 MG, UNK
  17. MAXALT                                  /NET/ [Concomitant]
     Indication: MIGRAINE
     Dosage: 10 MG, AS NEEDED
  18. PHENERGAN HCL [Concomitant]
     Dosage: 50 MG, AS NEEDED
     Dates: end: 20070917
  19. DILAUDID [Concomitant]
     Dosage: 5 MG, UNK
     Dates: end: 20051118
  20. DILAUDID [Concomitant]
     Dosage: 5 MG, AS NEEDED
     Dates: start: 20061103, end: 20051118
  21. DIAZEPAM [Concomitant]
     Dosage: 15 MG, AS NEEDED
     Dates: end: 20070917
  22. METHADONE HCL [Concomitant]
     Dosage: 5 MG, DAILY (1/D)
     Dates: end: 20070917
  23. CELEXA [Concomitant]
     Indication: MULTIPLE SCLEROSIS
     Dosage: 40 MG, DAILY (1/D)
     Route: 048
  24. SINGULAIR [Concomitant]
     Indication: HYPERSENSITIVITY
     Dosage: 10 MG, DAILY (1/D)
     Route: 048
  25. PROVENTIL-HFA [Concomitant]
     Indication: ASTHMA
  26. NASACORT [Concomitant]
     Indication: CHRONIC SINUSITIS
     Dosage: UNK, AS NEEDED
  27. BACLOFEN [Concomitant]
     Indication: PAIN
     Dosage: 10 MG, EACH EVENING
     Route: 048
  28. EXCEDRIN [Concomitant]
     Indication: HEADACHE
     Dosage: UNK, AS NEEDED
  29. TIZANIDINE HCL [Concomitant]
     Indication: PAIN
     Dosage: 12 MG, 3/D
     Route: 048

REACTIONS (8)
  - ABDOMINAL PAIN [None]
  - BLOOD URINE PRESENT [None]
  - CHEST PAIN [None]
  - COUGH [None]
  - DYSPHAGIA [None]
  - EAR PAIN [None]
  - NIGHT SWEATS [None]
  - PITUITARY TUMOUR RECURRENT [None]
